FAERS Safety Report 5993968-3 (Version None)
Quarter: 2008Q4

REPORT INFORMATION
  Report Type: 
  Country: None (occurrence: None)
  Receive Date: 20081212
  Receipt Date: 20081209
  Transmission Date: 20090506
  Serious: Yes (Hospitalization)
  Sender: FDA-Public Use
  Company Number: B0546503A

PATIENT
  Age: 65 Year
  Sex: Male

DRUGS (7)
  1. MELPHALAN [Suspect]
     Indication: MULTIPLE MYELOMA
     Dosage: 12MG PER DAY
     Route: 048
     Dates: start: 20080819, end: 20080919
  2. PREDNISONE [Suspect]
     Indication: MULTIPLE MYELOMA
     Dosage: 134MG PER DAY
     Route: 048
     Dates: start: 20080819, end: 20080919
  3. BLINDED TRIAL MEDICATION [Suspect]
     Indication: MULTIPLE MYELOMA
     Dosage: 10MG PER DAY
     Route: 048
     Dates: start: 20080819, end: 20080925
  4. TRAMADOL HCL [Concomitant]
     Dates: start: 20080902
  5. RAMIPRIL [Concomitant]
     Dates: start: 20080401
  6. LANSOPRAZOLE [Concomitant]
     Dates: start: 20080819
  7. ACETYLSALICYLACID [Concomitant]
     Dates: start: 20080819

REACTIONS (2)
  - HEMIPARESIS [None]
  - PYREXIA [None]
